FAERS Safety Report 21198221 (Version 1)
Quarter: 2022Q3

REPORT INFORMATION
  Report Type: Spontaneous
  Country: US (occurrence: US)
  Receive Date: 20220811
  Receipt Date: 20220811
  Transmission Date: 20221026
  Serious: No
  Sender: FDA-Public Use
  Company Number: US-SA-SAC20220808001447

PATIENT
  Sex: Male
  Weight: 77.098 kg

DRUGS (7)
  1. DUPIXENT [Suspect]
     Active Substance: DUPILUMAB
     Indication: Dermatitis
     Dosage: 300 MG, QOW
     Route: 058
  2. LIDOCAINE [Concomitant]
     Active Substance: LIDOCAINE
  3. EPINEPHRINE [Concomitant]
     Active Substance: EPINEPHRINE
  4. DIPHENHYDRAMINE [Concomitant]
     Active Substance: DIPHENHYDRAMINE
  5. ACETAMINOPHEN [Concomitant]
     Active Substance: ACETAMINOPHEN
  6. CUVITRU [Concomitant]
     Active Substance: HUMAN IMMUNOGLOBULIN G
  7. CITALOPRAM [Concomitant]
     Active Substance: CITALOPRAM HYDROBROMIDE

REACTIONS (2)
  - Sinusitis [Unknown]
  - Product use in unapproved indication [Unknown]
